FAERS Safety Report 24080172 (Version 1)
Quarter: 2024Q3

REPORT INFORMATION
  Report Type: Spontaneous
  Country: JP (occurrence: JP)
  Receive Date: 20240711
  Receipt Date: 20240711
  Transmission Date: 20241016
  Serious: Yes (Other)
  Sender: BAXTER
  Company Number: JP-shionogi-202404967

PATIENT
  Sex: Female
  Weight: 1.98 kg

DRUGS (5)
  1. CYCLOPHOSPHAMIDE [Suspect]
     Active Substance: CYCLOPHOSPHAMIDE
     Indication: Primary mediastinal large B-cell lymphoma
     Dosage: R-CHOP, 750 MG/M2, QD, DAY 1
     Route: 064
  2. RITUXIMAB [Suspect]
     Active Substance: RITUXIMAB
     Indication: Primary mediastinal large B-cell lymphoma
     Dosage: R-CHOP, 375 MG/M2, QD, DAY 1, GENETICAL RECOMBINATION
     Route: 064
  3. PREDNISOLONE [Concomitant]
     Active Substance: PREDNISOLONE
     Indication: Primary mediastinal large B-cell lymphoma
     Dosage: R-CHOP, 100 MG/M2, QD, DAY 1-5
     Route: 064
  4. DOXORUBICIN HYDROCHLORIDE [Concomitant]
     Active Substance: DOXORUBICIN HYDROCHLORIDE
     Indication: Primary mediastinal large B-cell lymphoma
     Dosage: R-CHOP, 50 MG/M2, QD, DAY 1
     Route: 064
  5. VINCRISTINE SULFATE [Concomitant]
     Active Substance: VINCRISTINE SULFATE
     Indication: Primary mediastinal large B-cell lymphoma
     Dosage: R-CHOP, 1.4 MG/M2 QD, DAY 1
     Route: 064

REACTIONS (4)
  - Maternal drugs affecting foetus [Unknown]
  - B-cell aplasia [Recovering/Resolving]
  - Foetal growth restriction [Unknown]
  - Foetal exposure during pregnancy [Unknown]
